FAERS Safety Report 10434387 (Version 1)
Quarter: 2014Q3

REPORT INFORMATION
  Report Type: Spontaneous
  Country: US (occurrence: US)
  Receive Date: 20140905
  Receipt Date: 20140905
  Transmission Date: 20150326
  Serious: No
  Sender: FDA-Public Use
  Company Number: US-009507513-1408USA016978

PATIENT
  Sex: Male

DRUGS (2)
  1. SOVALDI [Concomitant]
     Active Substance: SOFOSBUVIR
  2. PEGINTRON [Suspect]
     Active Substance: PEGINTERFERON ALFA-2B

REACTIONS (4)
  - Pain [Unknown]
  - Pain in extremity [Unknown]
  - Musculoskeletal pain [Unknown]
  - Tremor [Unknown]

NARRATIVE: CASE EVENT DATE: 20140828
